FAERS Safety Report 15108580 (Version 5)
Quarter: 2018Q3

REPORT INFORMATION
  Report Type: Report from Study
  Country: CA (occurrence: CA)
  Receive Date: 20180705
  Receipt Date: 20180829
  Transmission Date: 20181010
  Serious: Yes (Hospitalization, Other)
  Sender: FDA-Public Use
  Company Number: CA-ALXN-A201807243AA

PATIENT
  Age: 84 Year
  Sex: Male
  Weight: 70 kg

DRUGS (4)
  1. SOLIRIS [Suspect]
     Active Substance: ECULIZUMAB
     Indication: PAROXYSMAL NOCTURNAL HAEMOGLOBINURIA
     Dosage: 600 MG, QW
     Route: 042
     Dates: start: 20170410
  2. SOLIRIS [Suspect]
     Active Substance: ECULIZUMAB
     Dosage: 900 MG, Q2W
     Route: 042
     Dates: start: 20170508
  3. SOLIRIS [Suspect]
     Active Substance: ECULIZUMAB
     Dosage: 900 MG, Q2W
     Route: 042
     Dates: start: 20170508
  4. IRON SULFATE [Concomitant]
     Active Substance: FERROUS SULFATE ANHYDROUS
     Indication: PRODUCT USED FOR UNKNOWN INDICATION
     Dosage: 300 MG, QD
     Route: 048
     Dates: start: 201706

REACTIONS (17)
  - Gait disturbance [Not Recovered/Not Resolved]
  - Urinary tract infection [Recovered/Resolved]
  - Memory impairment [Not Recovered/Not Resolved]
  - Pancytopenia [Recovered/Resolved]
  - Cellulitis [Recovered/Resolved]
  - Streptococcal bacteraemia [Recovered/Resolved]
  - Hepatic lesion [Not Recovered/Not Resolved]
  - Cognitive disorder [Unknown]
  - Chills [Recovered/Resolved]
  - Insomnia [Not Recovered/Not Resolved]
  - Hepatic infection [Recovered/Resolved]
  - Tooth discolouration [Not Recovered/Not Resolved]
  - Stress [Unknown]
  - Liver abscess [Unknown]
  - Confusional state [Not Recovered/Not Resolved]
  - Weight decreased [Unknown]
  - Back pain [Not Recovered/Not Resolved]

NARRATIVE: CASE EVENT DATE: 2018
